FAERS Safety Report 5481309-X (Version None)
Quarter: 2007Q4

REPORT INFORMATION
  Report Type: 
  Country: None (occurrence: None)
  Receive Date: 20071010
  Receipt Date: 20071001
  Transmission Date: 20080405
  Serious: Yes (Death)
  Sender: FDA-Public Use
  Company Number: US-ROCHE-522256

PATIENT
  Age: 3 Year
  Sex: Female

DRUGS (1)
  1. ACCUTANE [Suspect]
     Indication: NEUROBLASTOMA
     Dosage: 14 DAYS ON 14 DAYS OFF. THE PATIENT WAS DISPENSED 40 MG CAPSULES ON 01 AUGUST 2007.
     Route: 065

REACTIONS (1)
  - NEUROBLASTOMA [None]
